FAERS Safety Report 16910820 (Version 1)
Quarter: 2019Q4

REPORT INFORMATION
  Report Type: Spontaneous
  Country: US (occurrence: US)
  Receive Date: 20190820
  Receipt Date: 20190820
  Transmission Date: 20200122
  Serious: Yes (Hospitalization)
  Sender: FDA-Public Use
  Company Number: None

PATIENT
  Age: 63 Year
  Sex: Male
  Weight: 102 kg

DRUGS (2)
  1. CHLORTHALIDONE. [Suspect]
     Active Substance: CHLORTHALIDONE
     Indication: HYPERTENSION
     Route: 048
     Dates: start: 20190715, end: 20190726
  2. CHLORTHALIDONE. [Suspect]
     Active Substance: CHLORTHALIDONE
     Indication: PAIN
     Route: 048
     Dates: start: 20190722, end: 20190725

REACTIONS (17)
  - Orthostatic hypotension [None]
  - Abdominal discomfort [None]
  - Hypophagia [None]
  - Heart rate increased [None]
  - Alcohol withdrawal syndrome [None]
  - Inappropriate antidiuretic hormone secretion [None]
  - Hyponatraemia [None]
  - Alcohol use [None]
  - Blood magnesium decreased [None]
  - Blood chloride decreased [None]
  - Asthenia [None]
  - Muscular weakness [None]
  - Arthralgia [None]
  - Urine output increased [None]
  - Hypoosmolar state [None]
  - Fall [None]
  - Hypertension [None]

NARRATIVE: CASE EVENT DATE: 20190726
